FAERS Safety Report 21862636 (Version 1)
Quarter: 2023Q1

REPORT INFORMATION
  Report Type: Report from Study
  Country: US (occurrence: US)
  Receive Date: 20230114
  Receipt Date: 20230114
  Transmission Date: 20230418
  Serious: Yes (Other)
  Sender: FDA-Public Use
  Company Number: US-ABBVIE-4270296

PATIENT
  Age: 80 Year
  Sex: Male

DRUGS (2)
  1. VENCLEXTA [Suspect]
     Active Substance: VENETOCLAX
     Indication: Acute myeloid leukaemia
     Dosage: TAKE 1 TABLET BY MOUTH DAILY FOR 14 DAYS ON FOLLOWED BY 28 DAYS OFF. TAKE WITH FOOD AND FULL GLAS...
     Route: 048
  2. VENCLEXTA [Suspect]
     Active Substance: VENETOCLAX
     Indication: Acute myeloid leukaemia
     Dosage: TAKE 1 TABLET BY MOUTH DAILY FOR 14 DAYS ON FOLLOWED BY 28 DAYS OFF. TAKE WITH FOOD AND FULL GLAS...
     Route: 048

REACTIONS (2)
  - Nephrolithiasis [Unknown]
  - Malaise [Unknown]

NARRATIVE: CASE EVENT DATE: 20230101
